FAERS Safety Report 21871785 (Version 1)
Quarter: 2023Q1

REPORT INFORMATION
  Report Type: Report from Study
  Country: US (occurrence: US)
  Receive Date: 20230117
  Receipt Date: 20230117
  Transmission Date: 20230417
  Serious: No
  Sender: FDA-Public Use
  Company Number: US-ABBVIE-22K-163-4510781-00

PATIENT
  Sex: Female

DRUGS (12)
  1. RINVOQ [Suspect]
     Active Substance: UPADACITINIB
     Indication: Rheumatoid arthritis
     Route: 048
  2. VALTREX [Concomitant]
     Active Substance: VALACYCLOVIR HYDROCHLORIDE
     Indication: Herpes simplex
     Dosage: FORM STRENGTH: 500 MG
     Route: 048
  3. PFIZER-BIONTECH COVID-19 VACCINE [Concomitant]
     Active Substance: TOZINAMERAN
     Indication: COVID-19 immunisation
     Dosage: FIRST DOSE?1 1 ONCE
     Route: 030
     Dates: start: 20210420, end: 20210420
  4. PFIZER-BIONTECH COVID-19 VACCINE [Concomitant]
     Active Substance: TOZINAMERAN
     Indication: COVID-19 immunisation
     Dosage: SECOND DOSE?1 1 ONCE
     Route: 030
     Dates: start: 20210522, end: 20210522
  5. PFIZER-BIONTECH COVID-19 VACCINE [Concomitant]
     Active Substance: TOZINAMERAN
     Indication: COVID-19 immunisation
     Dosage: THIRD DOSE?1 1 ONCE
     Route: 030
     Dates: start: 20220216, end: 20220216
  6. AZOPT [Concomitant]
     Active Substance: BRINZOLAMIDE
     Indication: Eye disorder
     Dates: start: 20221031
  7. PRED FORTE [Concomitant]
     Active Substance: PREDNISOLONE ACETATE
     Indication: Eye irritation
     Dates: start: 20221026
  8. XALATAN [Concomitant]
     Active Substance: LATANOPROST
     Indication: Eye disorder
     Dosage: ADMINISTERED IN BOTH EYES NIGHTLY 1 DROP
  9. HYDRODIURIL [Concomitant]
     Active Substance: HYDROCHLOROTHIAZIDE
     Indication: Pollakiuria
     Route: 048
     Dates: start: 20221017
  10. SYNTHROID [Concomitant]
     Active Substance: LEVOTHYROXINE SODIUM
     Indication: Thyroid disorder
     Dosage: FORM STRENGTH: 75 MICROGRAM
  11. RHOPRESSA [Concomitant]
     Active Substance: NETARSUDIL MESYLATE
     Indication: Eye disorder
     Dosage: ADMINISTERED IN BOTH EYES NIGHTLY?0.02% SOLUTION
  12. COMBIGAN [Concomitant]
     Active Substance: BRIMONIDINE TARTRATE\TIMOLOL MALEATE
     Indication: Eye disorder
     Dosage: ADMINISTERED IN BOTH EYES EVERY 12 HOURS 1 DROP

REACTIONS (2)
  - Arthropod infestation [Recovering/Resolving]
  - Glaucoma [Unknown]
